FAERS Safety Report 22357102 (Version 2)
Quarter: 2023Q2

REPORT INFORMATION
  Report Type: Spontaneous
  Country: GB (occurrence: GB)
  Receive Date: 20230524
  Receipt Date: 20230526
  Transmission Date: 20230722
  Serious: Yes (Congenital Anomaly, Other)
  Sender: FDA-Public Use
  Company Number: GB-STRIDES ARCOLAB LIMITED-2023SP007600

PATIENT

DRUGS (4)
  1. TOPIRAMATE [Suspect]
     Active Substance: TOPIRAMATE
     Indication: Product used for unknown indication
     Dosage: UNK (THE PATIENT MOTHER RECEIVED 150 MG/ DAY)
     Route: 064
  2. ZONISAMIDE [Suspect]
     Active Substance: ZONISAMIDE
     Indication: Product used for unknown indication
     Dosage: UNK (THE PATIENT MOTHER RECEIVED 300 MILLIGRAM PER DAY)
     Route: 064
  3. VALPROATE [Suspect]
     Active Substance: VALPROIC ACID
     Indication: Product used for unknown indication
     Dosage: UNK (THE PATIENT MOTHER RECEIVED 1800 MILLIGRAM PER DAY)
     Route: 064
  4. FOLIC ACID [Suspect]
     Active Substance: FOLIC ACID
     Indication: Product used for unknown indication
     Dosage: UNK (THE PATIENT MOTHER RECEIVED 5 MILLIGRAM)
     Route: 064

REACTIONS (3)
  - Ventricular septal defect [Unknown]
  - Congenital hand malformation [Unknown]
  - Foetal exposure during pregnancy [Unknown]
